FAERS Safety Report 4635463-X (Version None)
Quarter: 2005Q2

REPORT INFORMATION
  Report Type: 
  Country: None (occurrence: None)
  Receive Date: 20050413
  Receipt Date: 20050329
  Transmission Date: 20051028
  Serious: Yes (Other)
  Sender: FDA-Public Use
  Company Number: 10682

PATIENT

DRUGS (2)
  1. MILRINONE [Suspect]
     Indication: CARDIAC FAILURE CONGESTIVE
  2. MILRINONE [Suspect]
     Indication: CARDIOMYOPATHY

REACTIONS (1)
  - RENAL FAILURE ACUTE [None]
